FAERS Safety Report 10252081 (Version 2)
Quarter: 2014Q4

REPORT INFORMATION
  Report Type: Spontaneous
  Country: IT (occurrence: IT)
  Receive Date: 20140623
  Receipt Date: 20141021
  Transmission Date: 20150528
  Serious: Yes (Other)
  Sender: FDA-Public Use
  Company Number: PHHY2014IT076237

PATIENT
  Age: 64 Year
  Sex: Female

DRUGS (2)
  1. TAREG [Suspect]
     Active Substance: VALSARTAN
     Indication: HYPERTENSION
     Dosage: 80 MG, DAILY
     Route: 048
     Dates: start: 20120101, end: 20140606
  2. ASPIRINA [Concomitant]
     Active Substance: ASPIRIN
     Indication: HEADACHE
     Dosage: PRN (AS NEEDED)
     Route: 048

REACTIONS (1)
  - Pemphigoid [Recovered/Resolved]

NARRATIVE: CASE EVENT DATE: 20130701
